FAERS Safety Report 13080600 (Version 1)
Quarter: 2017Q1

REPORT INFORMATION
  Report Type: Spontaneous
  Country: ES (occurrence: ES)
  Receive Date: 20170103
  Receipt Date: 20170103
  Transmission Date: 20170428
  Serious: Yes (Other)
  Sender: FDA-Public Use
  Company Number: ES-JNJFOC-20170100509

PATIENT
  Age: 71 Year
  Sex: Male

DRUGS (9)
  1. XARELTO [Suspect]
     Active Substance: RIVAROXABAN
     Indication: ATRIAL FIBRILLATION
     Route: 048
     Dates: start: 2016
  2. PRAVASTATINA GI [Concomitant]
     Indication: OSTEOARTHRITIS
     Route: 048
  3. ALMOGRAN [Concomitant]
     Active Substance: ALMOTRIPTAN MALATE
     Route: 048
  4. PRAVASTATINA GI [Concomitant]
     Indication: HYPERCHOLESTEROLAEMIA
     Route: 048
  5. XARELTO [Suspect]
     Active Substance: RIVAROXABAN
     Indication: CEREBROVASCULAR ACCIDENT PROPHYLAXIS
     Route: 048
     Dates: start: 2016
  6. OPIREN [Concomitant]
     Active Substance: LANSOPRAZOLE
     Route: 048
  7. SEGURIL [Concomitant]
     Active Substance: FUROSEMIDE
     Route: 048
  8. PARACETAMOL [Concomitant]
     Active Substance: ACETAMINOPHEN
     Indication: OSTEOARTHRITIS
     Route: 065
  9. EMCONCOR [Concomitant]
     Active Substance: BISOPROLOL FUMARATE
     Route: 048

REACTIONS (1)
  - Parkinsonism [Recovering/Resolving]

NARRATIVE: CASE EVENT DATE: 20160315
